FAERS Safety Report 8790921 (Version 1)
Quarter: 2012Q4

REPORT INFORMATION
  Report Type: Spontaneous
  Country: JP (occurrence: None)
  Receive Date: 20120907
  Receipt Date: 20120907
  Transmission Date: 20130627
  Serious: Yes (Other)
  Sender: FDA-Public Use
  Company Number: DSA_59243_2012

PATIENT

DRUGS (5)
  1. FLUOROURACIL [Suspect]
     Indication: COLORECTAL CANCER METASTATIC
     Route: 040
  2. FLUOROURACIL [Suspect]
     Indication: COLORECTAL CANCER METASTATIC
     Dosage: (2400 mg/m2 46-hour infusion, every 2 weeks intravenous (not otherwise specified)
     Route: 042
  3. CALCIUM FOLINATE [Suspect]
     Indication: COLORECTAL CANCER METASTATIC
     Dosage: (200 mg/m2 1x/2 weeks intravenous (not otherwise specified)
     Route: 042
  4. IRINOTECAN [Suspect]
     Indication: COLORECTAL CANCER METASTATIC
     Dosage: (180 mg/m2 1x/2 weeks intravenous (not otherwise specified))
     Route: 042
  5. SUNITINIB [Suspect]
     Indication: COLORECTAL CANCER METASTATIC
     Dosage: (37.5 mg per day on schedule 4/2 (4 weeks on, 2 weeks off) oral)
     Route: 048

REACTIONS (1)
  - Influenza [None]
